FAERS Safety Report 6867415-3 (Version None)
Quarter: 2010Q3

REPORT INFORMATION
  Report Type: 
  Country: None (occurrence: None)
  Receive Date: 20100722
  Receipt Date: 20100712
  Transmission Date: 20110219
  Serious: Yes (Other)
  Sender: FDA-Public Use
  Company Number: US-ALLERGAN-1008958US

PATIENT
  Age: 67 Year
  Sex: Female

DRUGS (4)
  1. BOTOX COSMETIC [Suspect]
     Indication: SKIN WRINKLING
     Dosage: 6 UNITS, SINGLE
     Route: 030
     Dates: start: 20100506, end: 20100506
  2. MUCINEX DM [Concomitant]
     Indication: COUGH
     Dosage: 600 MG, QD
     Route: 048
     Dates: start: 20100712
  3. ROBITUSSIN DM [Concomitant]
     Indication: COUGH
     Dosage: UNK, PRN
     Route: 048
     Dates: start: 20100711
  4. NEXIUM [Concomitant]
     Indication: GASTROOESOPHAGEAL REFLUX DISEASE
     Dosage: 40 MG, PRN
     Route: 048
     Dates: start: 20100711

REACTIONS (17)
  - COUGH [None]
  - DIZZINESS [None]
  - DRUG TOXICITY [None]
  - DRY EYE [None]
  - DRY MOUTH [None]
  - DYSPHAGIA [None]
  - DYSPHONIA [None]
  - FACIAL PARESIS [None]
  - HYPOAESTHESIA FACIAL [None]
  - INJECTION SITE PAIN [None]
  - LIP SWELLING [None]
  - LIVER FUNCTION TEST ABNORMAL [None]
  - PARAESTHESIA [None]
  - PNEUMONIA [None]
  - SENSATION OF HEAVINESS [None]
  - URINARY TRACT INFECTION [None]
  - VIITH NERVE PARALYSIS [None]
